FAERS Safety Report 7919563-4 (Version None)
Quarter: 2011Q4

REPORT INFORMATION
  Report Type: 
  Country: None (occurrence: None)
  Receive Date: 20111116
  Receipt Date: 20111116
  Transmission Date: 20120403
  Serious: Yes (Hospitalization)
  Sender: FDA-Public Use
  Company Number: None

PATIENT
  Age: 44 Year
  Sex: Female
  Weight: 94 kg

DRUGS (6)
  1. LASIX [Suspect]
     Indication: OEDEMA PERIPHERAL
     Dosage: 20 MG DAILY PO
     Route: 048
  2. M.V.I. [Concomitant]
  3. GABAPENTIN [Concomitant]
  4. DULOXETIME HYDROCHLORIDE [Concomitant]
  5. ZOLPIDEM [Concomitant]
  6. PERCOCET [Concomitant]

REACTIONS (1)
  - PANCREATITIS ACUTE [None]
